FAERS Safety Report 20410289 (Version 2)
Quarter: 2022Q1

REPORT INFORMATION
  Report Type: Spontaneous
  Country: PL (occurrence: PL)
  Receive Date: 20220201
  Receipt Date: 20220221
  Transmission Date: 20220423
  Serious: Yes (Death, Life-Threatening, Hospitalization, Other)
  Sender: FDA-Public Use
  Company Number: PL-NOVARTISPH-PHHY2017PL071812

PATIENT
  Age: 14 Year
  Sex: Female

DRUGS (23)
  1. DOXORUBICIN [Suspect]
     Active Substance: DOXORUBICIN
     Indication: Extra-osseous Ewing^s sarcoma
     Dosage: UNK (CYCLICAL) VIDE REGIMEN
     Route: 065
  2. DOXORUBICIN [Suspect]
     Active Substance: DOXORUBICIN
     Indication: Metastases to bone marrow
  3. CARBOPLATIN [Suspect]
     Active Substance: CARBOPLATIN
     Indication: Extra-osseous Ewing^s sarcoma
     Dosage: UNK, (CYCLICAL) CEVAIE CHEMOTHERAPY
     Route: 065
  4. CARBOPLATIN [Suspect]
     Active Substance: CARBOPLATIN
     Indication: Metastases to bone marrow
  5. EPIRUBICIN [Suspect]
     Active Substance: EPIRUBICIN
     Indication: Extra-osseous Ewing^s sarcoma
     Dosage: UNK (CYCLICAL) CEVAIE CHEMOTHERAPY
     Route: 065
  6. EPIRUBICIN [Suspect]
     Active Substance: EPIRUBICIN
     Indication: Metastases to bone marrow
  7. ETOPOSIDE [Suspect]
     Active Substance: ETOPOSIDE
     Indication: Extra-osseous Ewing^s sarcoma
     Dosage: UNK, CYCLIC CEVAIE CHEMOTHERAPY
     Route: 065
  8. ETOPOSIDE [Suspect]
     Active Substance: ETOPOSIDE
     Indication: Metastases to bone marrow
     Dosage: UNK (VIDE REGIMEN)
     Route: 065
  9. TEMOZOLOMIDE [Suspect]
     Active Substance: TEMOZOLOMIDE
     Indication: Extra-osseous Ewing^s sarcoma
     Dosage: UNK
     Route: 065
  10. CASPOFUNGIN [Suspect]
     Active Substance: CASPOFUNGIN
     Indication: Fungal infection
     Dosage: UNK
     Route: 042
  11. ACTINOMYCIN D [Suspect]
     Active Substance: DACTINOMYCIN
     Indication: Extra-osseous Ewing^s sarcoma
     Dosage: UNK VAI ADJUVANT CHEMOTHERAPY
     Route: 065
  12. ACTINOMYCIN D [Suspect]
     Active Substance: DACTINOMYCIN
     Dosage: UNK (CEVAIE CHEMOTHERAPY)
     Route: 065
  13. AMPHOTERICIN B [Suspect]
     Active Substance: AMPHOTERICIN B
     Indication: Fungal infection
     Dosage: 1 MG, UNK 1 MG OF AMPHOTERICIN B/2 L OF SALINE
     Route: 065
  14. AMPHOTERICIN B [Suspect]
     Active Substance: AMPHOTERICIN B
     Dosage: UNK UNK, Q6H, QID (6 MG OF AMPHOTERICIN B IN 25 ML OF SALINE)
     Route: 042
  15. AMPHOTERICIN B [Suspect]
     Active Substance: AMPHOTERICIN B
     Dosage: UNK, UNKNOWN
     Route: 042
  16. IFOSFAMIDE [Suspect]
     Active Substance: IFOSFAMIDE
     Indication: Extra-osseous Ewing^s sarcoma
     Dosage: UNK (CEVAIE CHEMOTHERAPY)
     Route: 065
  17. IFOSFAMIDE [Suspect]
     Active Substance: IFOSFAMIDE
     Indication: Metastases to bone marrow
     Dosage: UNK (VIDE REGIMEN)
     Route: 065
  18. IFOSFAMIDE [Suspect]
     Active Substance: IFOSFAMIDE
     Dosage: UNK VAI ADJUVANT CHEMOTHERAPY
     Route: 065
  19. VINCRISTINE [Suspect]
     Active Substance: VINCRISTINE
     Indication: Extra-osseous Ewing^s sarcoma
     Dosage: UNK (VAI ADJUVANT CHEMOTHERAPY)
     Route: 065
  20. VINCRISTINE [Suspect]
     Active Substance: VINCRISTINE
     Indication: Metastases to bone marrow
     Dosage: UNK (CYCLICAL) CEVAIE CHEMOTHERAPYUNK
     Route: 065
  21. VINCRISTINE [Suspect]
     Active Substance: VINCRISTINE
     Dosage: UNK (VIDE REGIMEN)
     Route: 065
  22. IRINOTECAN [Suspect]
     Active Substance: IRINOTECAN
     Indication: Extra-osseous Ewing^s sarcoma
     Dosage: UNK, CYCLIC
     Route: 065
  23. POSACONAZOLE [Concomitant]
     Active Substance: POSACONAZOLE
     Indication: Fungal infection
     Dosage: UNK
     Route: 065

REACTIONS (21)
  - Systemic candida [Fatal]
  - Vomiting [Fatal]
  - Oesophageal hypomotility [Fatal]
  - Febrile neutropenia [Fatal]
  - Myelosuppression [Fatal]
  - Gastrointestinal disorder [Fatal]
  - Neutropenia [Fatal]
  - Nausea [Fatal]
  - Cachexia [Fatal]
  - Agranulocytosis [Fatal]
  - Pain in extremity [Fatal]
  - Thrombocytopenia [Fatal]
  - Haematuria [Fatal]
  - Gait disturbance [Fatal]
  - Ileus [Fatal]
  - Decreased appetite [Fatal]
  - Osteolysis [Fatal]
  - Gastrointestinal inflammation [Fatal]
  - Pyrexia [Fatal]
  - Condition aggravated [Fatal]
  - Drug ineffective [Fatal]
